FAERS Safety Report 5775482-3 (Version None)
Quarter: 2008Q2

REPORT INFORMATION
  Report Type: 
  Country: None (occurrence: None)
  Receive Date: 20080604
  Receipt Date: 20080110
  Transmission Date: 20081010
  Serious: No
  Sender: FDA-Public Use
  Company Number: US200711000796

PATIENT
  Age: 50 Year
  Sex: Male
  Weight: 103.9 kg

DRUGS (4)
  1. BYETTA [Suspect]
     Indication: TYPE 2 DIABETES MELLITUS
     Dosage: 5 UG, 2/D, SUBCUTANEOUS
     Route: 058
     Dates: start: 20071101
  2. METFORMIN HCL [Concomitant]
  3. CIALIS [Concomitant]
  4. LIPITOR [Concomitant]

REACTIONS (7)
  - CHILLS [None]
  - DIZZINESS [None]
  - FEELING COLD [None]
  - HEADACHE [None]
  - HYPERHIDROSIS [None]
  - PALPITATIONS [None]
  - SOMNOLENCE [None]
